FAERS Safety Report 25883691 (Version 1)
Quarter: 2025Q4

REPORT INFORMATION
  Report Type: Spontaneous
  Country: EU (occurrence: EU)
  Receive Date: 20251006
  Receipt Date: 20251006
  Transmission Date: 20260118
  Serious: Yes (Other)
  Sender: STRIDES
  Company Number: EU-STRIDES ARCOLAB LIMITED-2025SP012543

PATIENT

DRUGS (4)
  1. PREDNISOLONE [Suspect]
     Active Substance: PREDNISOLONE
     Indication: Birdshot chorioretinopathy
     Dosage: 1 MILLIGRAM/KILOGRAM, QD
     Route: 048
  2. PREDNISOLONE [Suspect]
     Active Substance: PREDNISOLONE
     Indication: HLA marker study positive
     Dosage: UNK, TAPERING OFF PROGRESSIVELY
     Route: 048
  3. INTERFERON ALFA-2A [Concomitant]
     Active Substance: INTERFERON ALFA-2A
     Indication: Birdshot chorioretinopathy
     Dosage: 3 MILLION IU, THRICE  A WEEK (3 MILLION IU 3 TIMES A WEEK)
     Route: 065
  4. INTERFERON ALFA-2A [Concomitant]
     Active Substance: INTERFERON ALFA-2A
     Indication: HLA marker study positive

REACTIONS (2)
  - Ocular hypertension [Unknown]
  - Off label use [Unknown]
